FAERS Safety Report 11263287 (Version 1)
Quarter: 2015Q3

REPORT INFORMATION
  Report Type: Report from Study
  Country: US (occurrence: US)
  Receive Date: 20150712
  Receipt Date: 20150712
  Transmission Date: 20151125
  Serious: Yes (Other)
  Sender: FDA-Public Use
  Company Number: US-JNJFOC-20150704804

PATIENT
  Age: 53 Year
  Sex: Female
  Weight: 86.18 kg

DRUGS (1)
  1. SIMPONI [Suspect]
     Active Substance: GOLIMUMAB
     Indication: RHEUMATOID ARTHRITIS
     Route: 058
     Dates: start: 201412, end: 201506

REACTIONS (3)
  - Drug ineffective [Unknown]
  - Weight increased [Not Recovered/Not Resolved]
  - Malignant melanoma [Recovering/Resolving]

NARRATIVE: CASE EVENT DATE: 201412
